FAERS Safety Report 5390367-2 (Version None)
Quarter: 2007Q3

REPORT INFORMATION
  Report Type: 
  Country: None (occurrence: None)
  Receive Date: 20070718
  Receipt Date: 20070711
  Transmission Date: 20080115
  Serious: Yes (Hospitalization)
  Sender: FDA-Public Use
  Company Number: GB-SANOFI-SYNTHELABO-F01200700800

PATIENT
  Sex: Male
  Weight: 49 kg

DRUGS (3)
  1. CETUXIMAB [Suspect]
     Dosage: 400 MG/M2 LOADING DOSE FOLLOWED BY A WEEKLY INFUSION OF 250 MG/M2
     Route: 041
     Dates: start: 20070508, end: 20070508
  2. CAPECITABINE [Suspect]
     Dosage: DAYS 1-14
     Route: 048
     Dates: start: 20070330, end: 20070508
  3. OXALIPLATIN [Suspect]
     Indication: COLORECTAL CANCER METASTATIC
     Route: 041
     Dates: start: 20070508, end: 20070508

REACTIONS (2)
  - CEREBROVASCULAR ACCIDENT [None]
  - HEMIPARESIS [None]
